FAERS Safety Report 24536347 (Version 1)
Quarter: 2024Q4

REPORT INFORMATION
  Report Type: Spontaneous
  Country: US (occurrence: US)
  Receive Date: 20241022
  Receipt Date: 20241022
  Transmission Date: 20250114
  Serious: Yes (Hospitalization, Other)
  Sender: ELI LILLY AND COMPANY
  Company Number: US-ELI_LILLY_AND_COMPANY-US202410009035

PATIENT
  Age: 28 Year
  Sex: Female
  Weight: 69.8 kg

DRUGS (18)
  1. ZEPBOUND [Suspect]
     Active Substance: TIRZEPATIDE
     Indication: Weight control
     Dosage: 5 MG, UNKNOWN
     Route: 065
     Dates: start: 202401, end: 2024
  2. ZEPBOUND [Suspect]
     Active Substance: TIRZEPATIDE
     Indication: Weight control
     Dosage: 5 MG, UNKNOWN
     Route: 065
     Dates: start: 202401, end: 2024
  3. ZEPBOUND [Suspect]
     Active Substance: TIRZEPATIDE
     Indication: Weight control
     Dosage: 5 MG, UNKNOWN
     Route: 065
     Dates: start: 202401, end: 2024
  4. ZEPBOUND [Suspect]
     Active Substance: TIRZEPATIDE
     Indication: Weight control
     Dosage: 5 MG, UNKNOWN
     Route: 065
     Dates: start: 202401, end: 2024
  5. CYMBALTA [Suspect]
     Active Substance: DULOXETINE HYDROCHLORIDE
     Indication: Product used for unknown indication
     Dosage: 20 MG, UNKNOWN
     Route: 065
  6. LUMRYZ [Suspect]
     Active Substance: SODIUM OXYBATE
     Indication: Narcolepsy
     Dosage: 4.5 G, UNKNOWN
     Route: 048
     Dates: start: 2023, end: 2024
  7. LUMRYZ [Suspect]
     Active Substance: SODIUM OXYBATE
     Dosage: 6 G, EACH EVENING
     Route: 048
     Dates: start: 2024, end: 2024
  8. LUMRYZ [Suspect]
     Active Substance: SODIUM OXYBATE
     Dosage: 7.5 G, EACH EVENING
     Route: 048
     Dates: start: 2024
  9. LAMICTAL [Suspect]
     Active Substance: LAMOTRIGINE
     Indication: Product used for unknown indication
     Dosage: 125 MG, UNKNOWN
     Route: 065
  10. LAMICTAL [Suspect]
     Active Substance: LAMOTRIGINE
     Dosage: 150 MG, UNKNOWN
     Route: 065
  11. LATUDA [Suspect]
     Active Substance: LURASIDONE HYDROCHLORIDE
     Indication: Product used for unknown indication
     Dosage: UNK UNK, UNKNOWN
     Route: 065
     Dates: start: 2024
  12. SUNOSI [Suspect]
     Active Substance: SOLRIAMFETOL
     Indication: Product used for unknown indication
     Dosage: 150 MG, DAILY
     Route: 065
  13. PANTOPRAZOLE [Concomitant]
     Active Substance: PANTOPRAZOLE
     Indication: Product used for unknown indication
     Dosage: UNK UNK, UNKNOWN
  14. FAMOTIDINE [Concomitant]
     Active Substance: FAMOTIDINE
     Indication: Product used for unknown indication
     Dosage: UNK UNK, UNKNOWN
  15. ONDANSETRON [Concomitant]
     Active Substance: ONDANSETRON
     Indication: Product used for unknown indication
     Dosage: UNK UNK, UNKNOWN
  16. VALACYCLOVIR [Concomitant]
     Active Substance: VALACYCLOVIR HYDROCHLORIDE
     Indication: Product used for unknown indication
     Dosage: UNK UNK, UNKNOWN
  17. FEXOFENADINE [Concomitant]
     Active Substance: FEXOFENADINE HYDROCHLORIDE
     Indication: Product used for unknown indication
     Dosage: UNK UNK, UNKNOWN
  18. CELECOXIB [Concomitant]
     Active Substance: CELECOXIB
     Indication: Product used for unknown indication
     Dosage: UNK UNK, UNKNOWN

REACTIONS (42)
  - Suicidal ideation [Unknown]
  - Depression [Not Recovered/Not Resolved]
  - Bipolar disorder [Unknown]
  - Insomnia [Not Recovered/Not Resolved]
  - Brain fog [Unknown]
  - Paranoia [Unknown]
  - Eating disorder [Unknown]
  - Palpitations [Not Recovered/Not Resolved]
  - Trismus [Unknown]
  - Stress [Unknown]
  - Facial pain [Unknown]
  - Transient lingual papillitis [Unknown]
  - Night sweats [Unknown]
  - Coordination abnormal [Unknown]
  - Balance disorder [Unknown]
  - Bradykinesia [Unknown]
  - Energy increased [Unknown]
  - Social avoidant behaviour [Unknown]
  - Feeling of despair [Unknown]
  - Psychological trauma [Unknown]
  - Dissociation [Unknown]
  - Hypersomnia [Unknown]
  - Photophobia [Unknown]
  - Circadian rhythm sleep disorder [Unknown]
  - Hypophagia [Unknown]
  - Akathisia [Not Recovered/Not Resolved]
  - Burning sensation [Not Recovered/Not Resolved]
  - Middle insomnia [Unknown]
  - Memory impairment [Unknown]
  - Hyperhidrosis [Unknown]
  - Nocturia [Unknown]
  - Enuresis [Unknown]
  - Emotional disorder [Unknown]
  - Panic attack [Unknown]
  - Pain [Not Recovered/Not Resolved]
  - Dry mouth [Not Recovered/Not Resolved]
  - Serotonin syndrome [Recovering/Resolving]
  - Crying [Unknown]
  - Dehydration [Unknown]
  - Dizziness [Unknown]
  - Fatigue [Unknown]
  - Vomiting [Unknown]

NARRATIVE: CASE EVENT DATE: 20240401
